FAERS Safety Report 21364633 (Version 1)
Quarter: 2022Q3

REPORT INFORMATION
  Report Type: Spontaneous
  Country: NP (occurrence: US)
  Receive Date: 20220922
  Receipt Date: 20220922
  Transmission Date: 20221026
  Serious: Yes (Life-Threatening, Hospitalization)
  Sender: FDA-Public Use
  Company Number: NP-NORTHSTAR HEALTHCARE HOLDINGS-US-2022NSR000053

PATIENT
  Age: 25 Year
  Sex: Male

DRUGS (1)
  1. BACLOFEN [Suspect]
     Active Substance: BACLOFEN
     Indication: Product used for unknown indication
     Dosage: 25 MG (10 TABLETS AT ONE TIME)
     Route: 048

REACTIONS (1)
  - Intentional overdose [Unknown]
